FAERS Safety Report 7921973-6 (Version None)
Quarter: 2011Q4

REPORT INFORMATION
  Report Type: 
  Country: None (occurrence: None)
  Receive Date: 20111117
  Receipt Date: 20111109
  Transmission Date: 20120403
  Serious: Yes (Other)
  Sender: FDA-Public Use
  Company Number: US-RB-034140-11

PATIENT
  Sex: Female
  Weight: 1.842 kg

DRUGS (7)
  1. SEROQUEL [Suspect]
     Indication: INSOMNIA
     Dosage: BEGAN AT THIRD TRIMESTER
     Route: 064
     Dates: start: 20110601, end: 20110813
  2. SUBOXONE [Suspect]
     Indication: PRODUCT USED FOR UNKNOWN INDICATION
     Dosage: DOSING DETAILS UNKNOWN
     Route: 064
  3. MOTRIN [Suspect]
     Indication: PRODUCT USED FOR UNKNOWN INDICATION
     Dosage: EXPOSED SINCE 0 DAYS
     Route: 064
  4. PHENERGAN [Suspect]
     Route: 064
     Dates: start: 20110101, end: 20110813
  5. PHENERGAN [Suspect]
     Indication: VOMITING
     Route: 064
     Dates: start: 20110101, end: 20110813
  6. KLONOPIN [Suspect]
     Indication: ANXIETY
     Dosage: EXPOSED FROM THIRD TRIMESTER
     Route: 064
     Dates: start: 20110601, end: 20110813
  7. RITALIN [Suspect]
     Indication: ATTENTION DEFICIT/HYPERACTIVITY DISORDER
     Dosage: EXPOSED FROM THIRD TRIMESTER
     Route: 064
     Dates: start: 20110601, end: 20110813

REACTIONS (2)
  - FOETAL EXPOSURE DURING PREGNANCY [None]
  - PREMATURE BABY [None]
